FAERS Safety Report 8202475-9 (Version None)
Quarter: 2012Q1

REPORT INFORMATION
  Report Type: 
  Country: None (occurrence: None)
  Receive Date: 20120312
  Receipt Date: 20120301
  Transmission Date: 20120608
  Serious: Yes (Hospitalization, Other)
  Sender: FDA-Public Use
  Company Number: JP-JNJFOC-20120102914

PATIENT
  Sex: Female
  Weight: 39 kg

DRUGS (11)
  1. REMICADE [Suspect]
     Dosage: THIRD DOSE
     Route: 042
     Dates: start: 20111228
  2. ASACOL [Concomitant]
     Indication: COLITIS ULCERATIVE
     Route: 048
     Dates: start: 20110605
  3. IMURAN [Suspect]
     Indication: COLITIS ULCERATIVE
     Route: 048
     Dates: start: 20110203, end: 20120124
  4. MIYA BM [Concomitant]
     Indication: COLITIS ULCERATIVE
     Route: 048
     Dates: start: 20101207
  5. BETAMETHASONE SODIUM PHOSPHATE [Suspect]
     Indication: COLITIS ULCERATIVE
     Route: 054
     Dates: start: 20110928
  6. GAMOFA [Concomitant]
     Indication: GASTRITIS
     Route: 048
     Dates: start: 20110114
  7. ISONIAZID [Concomitant]
     Indication: ANTIBIOTIC PROPHYLAXIS
     Route: 048
     Dates: start: 20111128
  8. REMICADE [Suspect]
     Route: 042
     Dates: start: 20111130
  9. ALENDRONATE SODIUM [Concomitant]
     Indication: COLITIS ULCERATIVE
     Route: 048
     Dates: start: 20110114
  10. REMICADE [Suspect]
     Indication: COLITIS ULCERATIVE
     Route: 042
     Dates: start: 20111116
  11. PREDNISOLONE [Suspect]
     Indication: COLITIS ULCERATIVE
     Route: 048
     Dates: start: 20101228

REACTIONS (1)
  - PNEUMOCYSTIS JIROVECI PNEUMONIA [None]
